APPROVED DRUG PRODUCT: CROMOLYN SODIUM
Active Ingredient: CROMOLYN SODIUM
Strength: 5.2MG/SPRAY
Dosage Form/Route: SPRAY, METERED;NASAL
Application: A074800 | Product #001
Applicant: ACTAVIS MID ATLANTIC LLC
Approved: Jul 26, 2001 | RLD: No | RS: No | Type: DISCN